FAERS Safety Report 10907426 (Version 1)
Quarter: 2015Q1

REPORT INFORMATION
  Report Type: Spontaneous
  Country: GB (occurrence: GB)
  Receive Date: 20150312
  Receipt Date: 20150312
  Transmission Date: 20150721
  Serious: Yes (Other)
  Sender: FDA-Public Use
  Company Number: GB-BAYER-2015-032968

PATIENT
  Age: 49 Year
  Sex: Female
  Weight: 72.11 kg

DRUGS (2)
  1. FLUOXETINE [Concomitant]
     Active Substance: FLUOXETINE\FLUOXETINE HYDROCHLORIDE
     Dosage: UNK
  2. MIRENA [Suspect]
     Active Substance: LEVONORGESTREL
     Indication: MENORRHAGIA
     Dosage: 20 MCG/24HR, CONT
     Route: 015
     Dates: start: 20140606, end: 20150220

REACTIONS (19)
  - Irritability [Not Recovered/Not Resolved]
  - Vision blurred [Not Recovered/Not Resolved]
  - Mood swings [Not Recovered/Not Resolved]
  - Vaginal odour [Not Recovered/Not Resolved]
  - Breast swelling [Not Recovered/Not Resolved]
  - Chills [Not Recovered/Not Resolved]
  - Food craving [Not Recovered/Not Resolved]
  - Lethargy [Not Recovered/Not Resolved]
  - Breast pain [Not Recovered/Not Resolved]
  - Constipation [Not Recovered/Not Resolved]
  - Dizziness [Not Recovered/Not Resolved]
  - Arthralgia [Not Recovered/Not Resolved]
  - Abdominal distension [Not Recovered/Not Resolved]
  - Vaginal haemorrhage [Not Recovered/Not Resolved]
  - Headache [Unknown]
  - Abnormal weight gain [Not Recovered/Not Resolved]
  - Anxiety [Not Recovered/Not Resolved]
  - Fatigue [Not Recovered/Not Resolved]
  - Palpitations [Not Recovered/Not Resolved]

NARRATIVE: CASE EVENT DATE: 20140609
